FAERS Safety Report 12045943 (Version 2)
Quarter: 2016Q1

REPORT INFORMATION
  Report Type: Spontaneous
  Country: NO (occurrence: NO)
  Receive Date: 20160208
  Receipt Date: 20160211
  Transmission Date: 20160526
  Serious: Yes (Hospitalization, Congenital Anomaly, Other)
  Sender: FDA-Public Use
  Company Number: NO-ASTRAZENECA-2016SE11224

PATIENT
  Sex: Female

DRUGS (5)
  1. SYMBICORT [Suspect]
     Active Substance: BUDESONIDE\FORMOTEROL FUMARATE DIHYDRATE
     Indication: ASTHMA
     Dosage: DOSE AND FREQUENCY UNKNOWN
     Route: 064
  2. MORPHINE [Suspect]
     Active Substance: MORPHINE
     Indication: ABDOMINAL PAIN
     Route: 064
  3. PARACETAMOL [Suspect]
     Active Substance: ACETAMINOPHEN
     Indication: ABDOMINAL PAIN
     Dosage: UNKNOWN DOSE, THREE TIMES A DAY
     Route: 064
  4. MECILLINAM [Suspect]
     Active Substance: AMDINOCILLIN
     Indication: PYELONEPHRITIS
     Route: 064
  5. DICLOFENAC [Suspect]
     Active Substance: DICLOFENAC
     Indication: ABDOMINAL PAIN
     Route: 064

REACTIONS (10)
  - Generalised oedema [Recovered/Resolved]
  - Ascites [Recovered/Resolved]
  - Congenital pulmonary hypertension [Recovered/Resolved]
  - Right-to-left cardiac shunt [Recovered/Resolved]
  - Right ventricular failure [Recovered/Resolved]
  - Foetal exposure during pregnancy [Unknown]
  - Ductus arteriosus premature closure [Recovered/Resolved]
  - Cyanosis [Recovered/Resolved]
  - Tricuspid valve incompetence [Recovered/Resolved]
  - Foetal heart rate abnormal [Recovered/Resolved]
